FAERS Safety Report 16480513 (Version 4)
Quarter: 2019Q3

REPORT INFORMATION
  Report Type: Report from Study
  Country: US (occurrence: US)
  Receive Date: 20190626
  Receipt Date: 20190715
  Transmission Date: 20191004
  Serious: Yes (Hospitalization, Other)
  Sender: FDA-Public Use
  Company Number: US-GILEAD-2019-0411232

PATIENT
  Age: 33 Year
  Sex: Female

DRUGS (4)
  1. AMBRISENTAN [Suspect]
     Active Substance: AMBRISENTAN
     Indication: PULMONARY ARTERIAL HYPERTENSION
     Dosage: 5 MG, QD
     Route: 048
     Dates: start: 20190110
  2. REMODULIN [Concomitant]
     Active Substance: TREPROSTINIL
  3. TADALAFIL. [Concomitant]
     Active Substance: TADALAFIL
  4. LOMOTIL [LOPERAMIDE HYDROCHLORIDE] [Concomitant]

REACTIONS (11)
  - Vomiting [Unknown]
  - Haemoglobin decreased [Unknown]
  - Nausea [Unknown]
  - Speech disorder [Unknown]
  - Unevaluable event [Not Recovered/Not Resolved]
  - Injection site pain [Unknown]
  - Pulmonary arterial hypertension [Unknown]
  - Diarrhoea [Unknown]
  - Dyspnoea [Unknown]
  - Pneumonia [Unknown]
  - Dehydration [Unknown]
